FAERS Safety Report 9871217 (Version 2)
Quarter: 2014Q1

REPORT INFORMATION
  Report Type: Report from Study
  Country: ES (occurrence: ES)
  Receive Date: 20140205
  Receipt Date: 20140205
  Transmission Date: 20141002
  Serious: Yes (Other)
  Sender: FDA-Public Use
  Company Number: ES-VERTEX PHARMACEUTICALS INC-2013-010007

PATIENT
  Age: 62 Year
  Sex: Female

DRUGS (3)
  1. TELAPREVIR [Suspect]
     Indication: HEPATITIS C
     Dosage: UNK
     Route: 048
     Dates: start: 20130115
  2. PEGASYS [Suspect]
     Indication: HEPATITIS C
     Dosage: DOSAGE FORM: INJECTION
     Route: 058
     Dates: start: 20130115
  3. RIBAVIRIN [Suspect]
     Indication: HEPATITIS C
     Dosage: 600 MG, UNK
     Dates: start: 20130115

REACTIONS (11)
  - Thrombocytopenia [Unknown]
  - Hyperbilirubinaemia [Unknown]
  - Hyperuricaemia [Unknown]
  - Pruritus [Unknown]
  - Rash [Unknown]
  - Anaemia [Unknown]
  - Asthenia [Unknown]
  - Headache [Unknown]
  - Weight decreased [Unknown]
  - Insomnia [Unknown]
  - Cough [Unknown]
